FAERS Safety Report 20618044 (Version 2)
Quarter: 2025Q1

REPORT INFORMATION
  Report Type: Report from Study
  Country: IN (occurrence: IN)
  Receive Date: 20220321
  Receipt Date: 20250327
  Transmission Date: 20250409
  Serious: Yes (Hospitalization, Other)
  Sender: NOVARTIS
  Company Number: IN-NOVARTISPH-PHHY2018IN034170

PATIENT
  Age: 50 Year
  Sex: Male
  Weight: 70 kg

DRUGS (10)
  1. SIMULECT [Suspect]
     Active Substance: BASILIXIMAB
     Indication: Renal transplant
     Route: 042
     Dates: start: 20180202, end: 20180202
  2. SIMULECT [Suspect]
     Active Substance: BASILIXIMAB
     Route: 042
     Dates: start: 20180206, end: 20180206
  3. EVEROLIMUS [Suspect]
     Active Substance: EVEROLIMUS
     Indication: Product used for unknown indication
     Route: 065
     Dates: start: 20180214
  4. EVEROLIMUS [Suspect]
     Active Substance: EVEROLIMUS
     Route: 065
  5. TACROLIMUS [Suspect]
     Active Substance: TACROLIMUS
     Indication: Renal transplant
     Dosage: 3 MG, BID
     Route: 048
     Dates: start: 201802
  6. TACROLIMUS [Suspect]
     Active Substance: TACROLIMUS
     Dosage: 2.5 MG (MILLIGRAM), BID
     Route: 065
  7. Ritcema [Concomitant]
     Indication: Product used for unknown indication
     Route: 065
  8. NIFEDIPINE [Concomitant]
     Active Substance: NIFEDIPINE
     Indication: Product used for unknown indication
     Route: 065
  9. NIFEDIPINE [Concomitant]
     Active Substance: NIFEDIPINE
     Route: 065
  10. RITUXIMAB [Concomitant]
     Active Substance: RITUXIMAB
     Indication: Product used for unknown indication
     Route: 065

REACTIONS (18)
  - Kidney transplant rejection [Unknown]
  - Blood creatinine increased [Unknown]
  - Renal tubular injury [Unknown]
  - Hemiparesis [Unknown]
  - Renal disorder [Unknown]
  - Somatic symptom disorder [Unknown]
  - Atrioventricular block [Unknown]
  - Abdominal discomfort [Unknown]
  - Back pain [Unknown]
  - Bladder hypertrophy [Unknown]
  - Cystitis [Unknown]
  - Urinary tract infection [Unknown]
  - Gastroenteritis [Unknown]
  - Fall [Unknown]
  - Arthralgia [Unknown]
  - Cough [Unknown]
  - Diarrhoea [Unknown]
  - Vomiting [Unknown]

NARRATIVE: CASE EVENT DATE: 20180218
